FAERS Safety Report 10233457 (Version 1)
Quarter: 2014Q2

REPORT INFORMATION
  Report Type: Spontaneous
  Country: IR (occurrence: IR)
  Receive Date: 20140612
  Receipt Date: 20140612
  Transmission Date: 20141212
  Serious: Yes (Other)
  Sender: FDA-Public Use
  Company Number: PHHY2014IR068203

PATIENT
  Age: 44 Year
  Sex: Male

DRUGS (3)
  1. CLARITHROMYCIN [Suspect]
     Dosage: 500 MG, DAILY
  2. AMOXICILLIN [Concomitant]
     Dosage: 1000 MG, BID
  3. PANTOPRAZOLE [Concomitant]
     Dosage: 20 MG, DAILY

REACTIONS (4)
  - Hypomania [Unknown]
  - Self esteem inflated [Unknown]
  - Logorrhoea [Unknown]
  - Elevated mood [Unknown]
